FAERS Safety Report 4605189-7 (Version None)
Quarter: 2005Q2

REPORT INFORMATION
  Report Type: 
  Country: None (occurrence: None)
  Receive Date: 20050217
  Receipt Date: 20041210
  Transmission Date: 20051028
  Serious: Yes (Hospitalization)
  Sender: FDA-Public Use
  Company Number: US-SHR-04-021475

PATIENT
  Age: 63 Year
  Sex: Female
  Weight: 65.8 kg

DRUGS (17)
  1. CLIMARA [Suspect]
     Indication: HORMONE REPLACEMENT THERAPY
     Dosage: 0.05 MG/D, CONT, TRANSDERMAL
     Route: 062
     Dates: start: 19990125, end: 20010101
  2. PROMETRIUM(PROGESTERONE) CAPSULE [Suspect]
     Indication: HORMONE REPLACEMENT THERAPY
     Dosage: 100 MG/D, ORAL; 200 MG/D, ORAL
     Route: 048
     Dates: start: 19990309, end: 19991106
  3. PROMETRIUM(PROGESTERONE) CAPSULE [Suspect]
     Indication: HORMONE REPLACEMENT THERAPY
     Dosage: 100 MG/D, ORAL; 200 MG/D, ORAL
     Route: 048
     Dates: start: 20000208, end: 20010101
  4. PREMPRO(ESTROGENS CONJUGATED, MEDROXYPROGESTERONE ACETATE) TABLET [Suspect]
     Indication: HORMONE REPLACEMENT THERAPY
     Dosage: 0.625 MG/D, 1X/DAY, ORAL
     Route: 048
     Dates: start: 20010112, end: 20020530
  5. LAC-HYDRIN (AMMONIUM LACTATE) [Concomitant]
  6. RENOVA (TRETINOIN) [Concomitant]
  7. CELEBREX [Concomitant]
  8. CARISOPRODOL [Concomitant]
  9. BUSPIRONE (BUSPRONE) [Concomitant]
  10. CYCLOBENZAPRINE HCL [Concomitant]
  11. EVISTA [Concomitant]
  12. TRIMOX [Concomitant]
  13. RELAFEN [Concomitant]
  14. NULYTELY (MACROGOL, SODIUM BICARBONATE) [Concomitant]
  15. HYDROCODONE W/ACETAMINOPHEN (HYDROCORDONE BITARTRATE) [Concomitant]
  16. VITAMIN E [Concomitant]
  17. MVI (VITAMINS NOS) [Concomitant]

REACTIONS (4)
  - CORONARY ARTERY ATHEROSCLEROSIS [None]
  - DEPRESSION [None]
  - ISCHAEMIC STROKE [None]
  - METRORRHAGIA [None]
